FAERS Safety Report 5434380-5 (Version None)
Quarter: 2007Q3

REPORT INFORMATION
  Report Type: 
  Country: None (occurrence: None)
  Receive Date: 20070831
  Receipt Date: 20070709
  Transmission Date: 20080115
  Serious: No
  Sender: FDA-Public Use
  Company Number: A0662038A

PATIENT
  Age: 50 Year
  Sex: Female

DRUGS (3)
  1. ALLI [Suspect]
     Dates: start: 20070616, end: 20070621
  2. UNSPECIFIED MEDICATION [Concomitant]
  3. BLOOD PRESSURE MEDICATION [Concomitant]

REACTIONS (1)
  - WEIGHT INCREASED [None]
